FAERS Safety Report 16085218 (Version 1)
Quarter: 2019Q1

REPORT INFORMATION
  Report Type: Spontaneous
  Country: BR (occurrence: BR)
  Receive Date: 20190318
  Receipt Date: 20190318
  Transmission Date: 20190418
  Serious: Yes (Other)
  Sender: FDA-Public Use
  Company Number: BR-SA-2019SA068761

PATIENT
  Sex: Female

DRUGS (2)
  1. ALLEGRA-D [Suspect]
     Active Substance: FEXOFENADINE\PSEUDOEPHEDRINE
     Dosage: UNK UNK, UNK
     Route: 065
  2. METAMIZOLE SALT NOT SPECIFIED [Suspect]
     Active Substance: METAMIZOLE
     Dosage: UNK UNK, UNK
     Route: 065

REACTIONS (2)
  - Drug ineffective [Unknown]
  - Drug abuse [Unknown]
